FAERS Safety Report 11809139 (Version 1)
Quarter: 2015Q4

REPORT INFORMATION
  Report Type: Spontaneous
  Country: CZ (occurrence: CZ)
  Receive Date: 20151207
  Receipt Date: 20151207
  Transmission Date: 20160305
  Serious: Yes (Other)
  Sender: FDA-Public Use
  Company Number: ALCN2015CZ007332

PATIENT
  Age: 83 Year
  Sex: Female

DRUGS (1)
  1. SIMBRINZA [Suspect]
     Active Substance: BRIMONIDINE TARTRATE\BRINZOLAMIDE
     Indication: GLAUCOMA
     Dosage: 1 GTT, BID
     Route: 047
     Dates: start: 20151019, end: 20151116

REACTIONS (6)
  - Blood pressure fluctuation [Recovered/Resolved]
  - Mood altered [Unknown]
  - Dry throat [Not Recovered/Not Resolved]
  - Chest pain [Recovered/Resolved]
  - Throat irritation [Not Recovered/Not Resolved]
  - Vertigo [Recovered/Resolved]
